FAERS Safety Report 6747193 (Version 1)
Quarter: 2020Q3

REPORT INFORMATION
  Report Type: Report from Study
  Country: US (occurrence: US)
  Receive Date: 20080904
  Receipt Date: 20080904
  Transmission Date: 20201104
  Serious: Yes (Hospitalization)
  Sender: FDA-Public Use
  Company Number: US-ROCHE-583525

PATIENT
  Age: 80 Year
  Sex: Female

DRUGS (4)
  1. UNSPECIFIED INGREDIENT [Concomitant]
     Active Substance: UNSPECIFIED INGREDIENT
  2. IBANDRONIC ACID. [Suspect]
     Active Substance: IBANDRONIC ACID
     Indication: OSTEOPOROSIS
     Route: 048
     Dates: start: 200801, end: 20080602
  3. MOBIC [Concomitant]
     Active Substance: MELOXICAM
     Dosage: DRUG: MOBIG
  4. PLAVIX [Concomitant]
     Active Substance: CLOPIDOGREL BISULFATE

REACTIONS (3)
  - Pneumonia aspiration [Unknown]
  - Pancreatitis acute [Unknown]
  - Vomiting projectile [Unknown]

NARRATIVE: CASE EVENT DATE: 20080725
